FAERS Safety Report 20465464 (Version 1)
Quarter: 2022Q1

REPORT INFORMATION
  Report Type: Spontaneous
  Country: GB (occurrence: GB)
  Receive Date: 20220212
  Receipt Date: 20220212
  Transmission Date: 20220423
  Serious: Yes (Other)
  Sender: FDA-Public Use
  Company Number: GB-AMGEN-GBRSP2022019738

PATIENT

DRUGS (2)
  1. ADALIMUMAB [Suspect]
     Active Substance: ADALIMUMAB
     Indication: Juvenile idiopathic arthritis
     Dosage: UNK
     Route: 065
  2. COVID-19 VACCINE [Concomitant]

REACTIONS (11)
  - Cystoid macular oedema [Unknown]
  - Acute macular neuroretinopathy [Unknown]
  - Iridocyclitis [Unknown]
  - Corneal lesion [Unknown]
  - Uveitis [Unknown]
  - Optic neuritis [Unknown]
  - Ophthalmic herpes zoster [Unknown]
  - Vision blurred [Unknown]
  - Giant cell arteritis [Unknown]
  - Episcleritis [Unknown]
  - Intraocular pressure increased [Unknown]
